FAERS Safety Report 7484114-8 (Version None)
Quarter: 2011Q2

REPORT INFORMATION
  Report Type: 
  Country: None (occurrence: None)
  Receive Date: 20110517
  Receipt Date: 20081130
  Transmission Date: 20111010
  Serious: Yes (Hospitalization, Other)
  Sender: FDA-Public Use
  Company Number: US-BAYER-200840015NA

PATIENT
  Age: 71 Year
  Sex: Male
  Weight: 114 kg

DRUGS (25)
  1. LABETALOL [Concomitant]
     Dosage: 20 MG, BID
     Dates: end: 20020517
  2. LOVENOX [Concomitant]
     Dosage: 60 MG, QD
     Route: 058
     Dates: start: 20020517, end: 20020603
  3. PROTAMINE SULFATE [Concomitant]
     Dosage: 700 MG
     Route: 042
     Dates: start: 20020522, end: 20020522
  4. DIGOXIN ALMUS [Concomitant]
     Dosage: 0.25 MG, QD
     Route: 048
     Dates: end: 20020520
  5. NITROGLYCERIN [Concomitant]
     Dosage: UNK
     Route: 041
     Dates: start: 20020517, end: 20020521
  6. HEPARIN [Concomitant]
     Dosage: UNK
     Route: 041
     Dates: start: 20020520, end: 20020522
  7. AMIODARONE HCL [Concomitant]
     Dosage: 150 MG BOLUS
     Route: 042
     Dates: start: 20020522, end: 20020526
  8. TRASYLOL [Suspect]
     Indication: CORONARY ARTERY BYPASS
     Dosage: UNK
     Route: 042
     Dates: start: 20020522
  9. PLENDIL [Concomitant]
     Dosage: 5 MG, QD
     Route: 048
     Dates: end: 20020611
  10. PLAVIX [Concomitant]
     Dosage: 75 MG, QD
     Route: 048
     Dates: start: 20020517
  11. LIDOCAINE [Concomitant]
     Dosage: 100 MG BYPASS
     Dates: start: 20020522, end: 20020522
  12. PRIMACOR [Concomitant]
     Dosage: 5.5 MG THEN .5MG/KG
     Route: 042
     Dates: start: 20020522, end: 20020522
  13. LASIX [Concomitant]
     Dosage: 20 MG, UNK
     Route: 048
     Dates: start: 20010101
  14. NITROGLYCERIN [Concomitant]
     Dosage: 1 INCH
     Route: 061
     Dates: end: 20020522
  15. CARDIOPLEGIA [Concomitant]
     Dosage: 1200 ML BYPASS
     Dates: start: 20020522, end: 20020522
  16. VASOPRESSIN AND ANALOGUES [Concomitant]
     Dosage: AS NEEDED BYPASS
     Dates: start: 20020522, end: 20020522
  17. LISINOPRIL [Concomitant]
     Dosage: 40 MG, BID
     Route: 048
     Dates: start: 19860101, end: 20060830
  18. ASPIRIN [Concomitant]
     Dosage: 81 MG, QD
     Route: 048
  19. NIPRIDE [Concomitant]
     Dosage: UNK
     Route: 041
     Dates: start: 20020520, end: 20020521
  20. ISOVUE-370 [Concomitant]
     Dosage: 75 ML
     Route: 042
     Dates: start: 20020520, end: 20020520
  21. MANNITOL [Concomitant]
     Dosage: 25 MG BYPASS
     Dates: start: 20020522, end: 20020522
  22. LEVOPHED [Concomitant]
     Dosage: UNK
     Route: 042
     Dates: start: 20020522, end: 20020522
  23. TRASYLOL [Suspect]
     Indication: MITRAL VALVE REPAIR
  24. ANCEF [Concomitant]
     Dosage: 3 GM
     Route: 042
     Dates: start: 20020522, end: 20020522
  25. AMICAR [Concomitant]

REACTIONS (12)
  - ANHEDONIA [None]
  - RENAL FAILURE [None]
  - STRESS [None]
  - FEAR [None]
  - UNEVALUABLE EVENT [None]
  - PAIN [None]
  - RENAL IMPAIRMENT [None]
  - MULTI-ORGAN FAILURE [None]
  - RENAL INJURY [None]
  - EMOTIONAL DISTRESS [None]
  - ANXIETY [None]
  - INJURY [None]
